FAERS Safety Report 9201353 (Version 3)
Quarter: 2014Q2

REPORT INFORMATION
  Report Type: Spontaneous
  Country: US (occurrence: US)
  Receive Date: 20130401
  Receipt Date: 20140605
  Transmission Date: 20141212
  Serious: Yes (Hospitalization, Other)
  Sender: FDA-Public Use
  Company Number: US-ASTELLAS-2013US003464

PATIENT
  Age: 62 Year
  Sex: Female
  Weight: 54 kg

DRUGS (2)
  1. VESICARE [Suspect]
     Indication: URGE INCONTINENCE
     Route: 048
     Dates: start: 2009
  2. ANTIBIOTICS [Suspect]
     Indication: PRODUCT USED FOR UNKNOWN INDICATION
     Dosage: UNK UNK, UNKNOWN FREQ.
     Route: 065

REACTIONS (10)
  - Bacterial infection [Unknown]
  - Diarrhoea [Unknown]
  - Haematochezia [Unknown]
  - Clostridium difficile infection [Unknown]
  - Myocardial infarction [Unknown]
  - Catheterisation cardiac [Unknown]
  - Carotid artery occlusion [Unknown]
  - Carotid artery occlusion [Unknown]
  - Aortic occlusion [Unknown]
  - Hypertension [Unknown]
